FAERS Safety Report 5404933-9 (Version None)
Quarter: 2007Q3

REPORT INFORMATION
  Report Type: 
  Country: None (occurrence: None)
  Receive Date: 20070803
  Receipt Date: 20070723
  Transmission Date: 20080115
  Serious: Yes (Life-Threatening, Other)
  Sender: FDA-Public Use
  Company Number: GB-SOLVAY-00307033266

PATIENT
  Age: 61 Year
  Sex: Male
  Weight: 93 kg

DRUGS (1)
  1. TESTOSTERONE [Suspect]
     Indication: PRIMARY HYPOGONADISM
     Dosage: DAILY DOSE: 5 GRAM(S)
     Route: 062

REACTIONS (1)
  - BREAST CANCER MALE [None]
